FAERS Safety Report 4751271-3 (Version None)
Quarter: 2005Q3

REPORT INFORMATION
  Report Type: 
  Country: None (occurrence: None)
  Receive Date: 20050824
  Receipt Date: 20050816
  Transmission Date: 20060218
  Serious: Yes (Hospitalization)
  Sender: FDA-Public Use
  Company Number: DE-JNJFOC-20050305848

PATIENT
  Age: 61 Year
  Sex: Female

DRUGS (12)
  1. REMICADE [Suspect]
     Indication: RHEUMATOID ARTHRITIS
     Route: 042
  2. PREDNISOLONE [Concomitant]
  3. CELECOXIB [Concomitant]
  4. BUPRENORPHINE HCL [Concomitant]
  5. FOLIC ACID [Concomitant]
  6. CALCIUM GLUCONATE [Concomitant]
  7. ESOMEPRAZOLE [Concomitant]
  8. LEVOTHYROXINE SODIUM [Concomitant]
  9. FUROSEMIDE [Concomitant]
  10. METHOTREXATE [Concomitant]
     Route: 065
  11. METHOTREXATE [Concomitant]
     Route: 065
  12. ADALIMUMAB [Concomitant]
     Route: 065

REACTIONS (2)
  - HYPERTHYROIDISM [None]
  - SUPRAVENTRICULAR TACHYCARDIA [None]
